FAERS Safety Report 6585649-2 (Version None)
Quarter: 2010Q1

REPORT INFORMATION
  Report Type: 
  Country: None (occurrence: None)
  Receive Date: 20100217
  Receipt Date: 20100208
  Transmission Date: 20100710
  Serious: Yes (Other)
  Sender: FDA-Public Use
  Company Number: GB-PFIZER INC-2010017322

PATIENT
  Age: 50 Year
  Sex: Male

DRUGS (7)
  1. LIPITOR [Suspect]
     Dosage: UNK
  2. FISH OIL [Concomitant]
     Dosage: UNK
  3. AMLODIPINE [Concomitant]
     Dosage: UNK
  4. RAMIPRIL [Concomitant]
     Dosage: UNK
  5. ATENOLOL [Concomitant]
     Dosage: UNK
  6. BENDROFLUAZIDE [Concomitant]
     Dosage: UNK
  7. OMEPRAZOLE [Concomitant]
     Dosage: UNK

REACTIONS (3)
  - CORONARY ARTERY BYPASS [None]
  - MYALGIA [None]
  - PAIN IN EXTREMITY [None]
